FAERS Safety Report 5922061-0 (Version None)
Quarter: 2008Q4

REPORT INFORMATION
  Report Type: 
  Country: None (occurrence: None)
  Receive Date: 20081017
  Receipt Date: 20081014
  Transmission Date: 20090506
  Serious: Yes (Other)
  Sender: FDA-Public Use
  Company Number: B0537522A

PATIENT
  Age: 55 Year
  Sex: Female
  Weight: 63 kg

DRUGS (7)
  1. LAPATINIB [Suspect]
     Indication: BREAST CANCER
     Dosage: 1500MG PER DAY
     Route: 048
     Dates: start: 20080717
  2. PACLITAXEL [Suspect]
     Indication: BREAST CANCER
     Dosage: 80MGM2 PER DAY
     Route: 042
     Dates: start: 20080828
  3. PROTHAZIN [Concomitant]
     Indication: PREMEDICATION
     Route: 042
     Dates: start: 20080828
  4. DEXAMETHASONUM [Concomitant]
     Indication: PREMEDICATION
     Route: 042
     Dates: start: 20080828
  5. RANITIDINI HYDROCHLORIDUM [Concomitant]
     Indication: PREMEDICATION
     Route: 042
     Dates: start: 20080828
  6. NIMESULIDUM [Concomitant]
     Indication: BACK PAIN
     Route: 048
     Dates: start: 20080910
  7. PHOSPHATES [Concomitant]
     Indication: HEPATIC FUNCTION ABNORMAL
     Route: 048
     Dates: start: 20080910

REACTIONS (2)
  - ALANINE AMINOTRANSFERASE INCREASED [None]
  - HEPATIC FUNCTION ABNORMAL [None]
